FAERS Safety Report 19351311 (Version 1)
Quarter: 2021Q2

REPORT INFORMATION
  Report Type: Spontaneous
  Country: US (occurrence: US)
  Receive Date: 20210531
  Receipt Date: 20210531
  Transmission Date: 20210717
  Serious: Yes (Life-Threatening, Other)
  Sender: FDA-Public Use
  Company Number: US-PHARMATHEN-GPV2021PHT052072

PATIENT
  Age: 64 Year
  Sex: Female

DRUGS (1)
  1. DIMETHYL FUMARATE [Suspect]
     Active Substance: DIMETHYL FUMARATE
     Indication: RELAPSING-REMITTING MULTIPLE SCLEROSIS

REACTIONS (5)
  - Muscle spasms [Unknown]
  - Muscle spasticity [Unknown]
  - Fatigue [Unknown]
  - Paraesthesia [Unknown]
  - Glioblastoma [Unknown]
